FAERS Safety Report 8984144 (Version 1)
Quarter: 2012Q4

REPORT INFORMATION
  Report Type: Spontaneous
  Country: US (occurrence: None)
  Receive Date: 20121213
  Receipt Date: 20121213
  Transmission Date: 20130627
  Serious: Yes (Death)
  Sender: FDA-Public Use
  Company Number: 2012P1066554

PATIENT

DRUGS (4)
  1. IRINOTECAN [Suspect]
     Indication: GLIOBLASTOMA
     Dosage: q14d
  2. BEVACIZUMAB [Suspect]
     Indication: GLIOBLASTOMA
     Dosage: q14d
     Route: 042
  3. CARBOPLATIN [Suspect]
     Indication: GLIOBLASTOMA
     Dosage: AUC
  4. UNSPECIFIED CORTICOSTEROID [Concomitant]

REACTIONS (2)
  - Intestinal perforation [None]
  - Neurological decompensation [None]
